FAERS Safety Report 14597874 (Version 2)
Quarter: 2018Q2

REPORT INFORMATION
  Report Type: Spontaneous
  Country: US (occurrence: US)
  Receive Date: 20180305
  Receipt Date: 20180403
  Transmission Date: 20180711
  Serious: No
  Sender: FDA-Public Use
  Company Number: US-PFIZER INC-2018088301

PATIENT
  Age: 60 Year
  Sex: Female

DRUGS (1)
  1. SUTENT [Suspect]
     Active Substance: SUNITINIB MALATE
     Indication: RENAL CANCER
     Dosage: 25 MG, CYCLIC (DAILY FOR 28 DAYS ON/14 DAYS OFF)

REACTIONS (2)
  - Abdominal pain upper [Unknown]
  - Pollakiuria [Unknown]
